FAERS Safety Report 4353575-5 (Version None)
Quarter: 2004Q2

REPORT INFORMATION
  Report Type: 
  Country: None (occurrence: None)
  Receive Date: 20040504
  Receipt Date: 20040503
  Transmission Date: 20050107
  Serious: Yes (Other)
  Sender: FDA-Public Use
  Company Number: 001372

PATIENT
  Age: 35 Year
  Sex: Female
  Weight: 62.1 kg

DRUGS (1)
  1. ERRIN [Suspect]
     Indication: ORAL CONTRACEPTION
     Dosage: 1.00 TABLET, QD, ORAL
     Route: 048
     Dates: start: 20040401, end: 20040401

REACTIONS (4)
  - PRURITUS GENERALISED [None]
  - RASH GENERALISED [None]
  - RASH PRURITIC [None]
  - URTICARIA [None]
